FAERS Safety Report 5249001-4 (Version None)
Quarter: 2007Q1

REPORT INFORMATION
  Report Type: 
  Country: None (occurrence: None)
  Receive Date: 20070228
  Receipt Date: 20060509
  Transmission Date: 20070707
  Serious: No
  Sender: FDA-Public Use
  Company Number: US-GLAXOSMITHKLINE-A0604854A

PATIENT
  Age: 44 Year
  Sex: Female

DRUGS (1)
  1. VALTREX [Suspect]
     Dosage: 2000MG TWICE PER DAY
     Route: 048

REACTIONS (2)
  - DRUG INEFFECTIVE [None]
  - HERPES SIMPLEX [None]
